FAERS Safety Report 6321152-2 (Version None)
Quarter: 2009Q3

REPORT INFORMATION
  Report Type: 
  Country: None (occurrence: None)
  Receive Date: 20090822
  Receipt Date: 20090309
  Transmission Date: 20100115
  Serious: No
  Sender: FDA-Public Use
  Company Number: US-ABBOTT-08P-163-0493867-00

PATIENT
  Sex: Male

DRUGS (5)
  1. NIASPAN [Suspect]
     Indication: DRUG USE FOR UNKNOWN INDICATION
     Dates: start: 20081209
  2. ADVIL [Concomitant]
     Indication: PAIN
  3. TYLENOL (CAPLET) [Concomitant]
     Indication: PAIN
  4. SHOT FOR DIABETES [Concomitant]
     Indication: DIABETES MELLITUS
  5. 6 OTHER PILLS NOT ABLE TO NAME [Concomitant]
     Indication: DRUG USE FOR UNKNOWN INDICATION

REACTIONS (4)
  - BLOOD GLUCOSE INCREASED [None]
  - PAIN OF SKIN [None]
  - PARAESTHESIA [None]
  - PRURITUS [None]
